FAERS Safety Report 17985337 (Version 1)
Quarter: 2020Q3

REPORT INFORMATION
  Report Type: Spontaneous
  Country: US (occurrence: US)
  Receive Date: 20200706
  Receipt Date: 20200706
  Transmission Date: 20201103
  Serious: No
  Sender: FDA-Public Use
  Company Number: US-009507513-2006USA010053

PATIENT
  Sex: Female
  Weight: 80.27 kg

DRUGS (1)
  1. NEXPLANON [Suspect]
     Active Substance: ETONOGESTREL
     Indication: CONTRACEPTION
     Dosage: UNK, LEFT ARM
     Dates: start: 20170616

REACTIONS (3)
  - Pain in extremity [Recovering/Resolving]
  - Vaginal haemorrhage [Recovering/Resolving]
  - Incorrect product administration duration [Unknown]
